FAERS Safety Report 9352388 (Version 2)
Quarter: 2014Q1

REPORT INFORMATION
  Report Type: Report from Study
  Country: US (occurrence: US)
  Receive Date: 20130617
  Receipt Date: 20140303
  Transmission Date: 20141002
  Serious: Yes (Other)
  Sender: FDA-Public Use
  Company Number: US-ELI_LILLY_AND_COMPANY-US201206008279

PATIENT
  Age: 68 Year
  Sex: Female

DRUGS (7)
  1. TERIPARATIDE [Suspect]
     Indication: OSTEOPOROSIS
     Dosage: 20 UG, QD
     Route: 065
     Dates: start: 201208
  2. TERIPARATIDE [Suspect]
     Dosage: 20 UG, QD
     Route: 065
  3. TERIPARATIDE [Suspect]
     Dosage: 20 UG, QD
     Route: 065
     Dates: start: 201210
  4. REMICADE [Concomitant]
  5. ENBREL [Concomitant]
  6. CORTISONE [Concomitant]
     Indication: CHRONIC OBSTRUCTIVE PULMONARY DISEASE
  7. CALCIUM [Concomitant]

REACTIONS (5)
  - Staphylococcal infection [Unknown]
  - Headache [Recovered/Resolved]
  - Fall [Recovered/Resolved]
  - Anaemia [Unknown]
  - Rheumatoid arthritis [Unknown]
